FAERS Safety Report 8998891 (Version 3)
Quarter: 2013Q3

REPORT INFORMATION
  Report Type: Spontaneous
  Country: US (occurrence: US)
  Receive Date: 20130103
  Receipt Date: 20130711
  Transmission Date: 20140515
  Serious: Yes (Other)
  Sender: FDA-Public Use
  Company Number: US-PFIZER INC-2012332691

PATIENT
  Sex: Female

DRUGS (1)
  1. NEURONTIN [Suspect]
     Dosage: UNK

REACTIONS (8)
  - Dementia [Unknown]
  - Memory impairment [Unknown]
  - Hypoaesthesia [Unknown]
  - Blood pressure increased [Unknown]
  - Anxiety [Unknown]
  - Nervousness [Unknown]
  - Blood pressure fluctuation [Unknown]
  - Therapeutic response unexpected [Unknown]
